FAERS Safety Report 4508161-0 (Version None)
Quarter: 2004Q4

REPORT INFORMATION
  Report Type: 
  Country: None (occurrence: None)
  Receive Date: 20041123
  Receipt Date: 20031027
  Transmission Date: 20050328
  Serious: No
  Sender: FDA-Public Use
  Company Number: US-GLAXOSMITHKLINE-A0432179A

PATIENT
  Age: 26 Year
  Sex: Female

DRUGS (5)
  1. WELLBUTRIN [Suspect]
     Indication: ATTENTION DEFICIT/HYPERACTIVITY DISORDER
     Dosage: 200MG IN THE MORNING
     Route: 048
     Dates: start: 20030701, end: 20031001
  2. WELLBUTRIN [Suspect]
     Dosage: 300MG IN THE MORNING
     Route: 048
     Dates: start: 20031016, end: 20031021
  3. ADDERALL 10 [Concomitant]
     Indication: ATTENTION DEFICIT/HYPERACTIVITY DISORDER
     Dosage: 10MG UNKNOWN
     Route: 065
  4. LEXAPRO [Concomitant]
     Indication: DEPRESSION
     Route: 048
     Dates: start: 20031028
  5. ADDERALL 20 [Concomitant]
     Indication: ATTENTION DEFICIT/HYPERACTIVITY DISORDER
     Dosage: 20MG PER DAY
     Route: 048
     Dates: start: 20030710

REACTIONS (1)
  - TINNITUS [None]
